FAERS Safety Report 4472873-8 (Version None)
Quarter: 2004Q4

REPORT INFORMATION
  Report Type: 
  Country: None (occurrence: None)
  Receive Date: 20041012
  Receipt Date: 20041012
  Transmission Date: 20050328
  Serious: Yes (Hospitalization, Other)
  Sender: FDA-Public Use
  Company Number: None

PATIENT
  Age: 78 Year
  Sex: Female

DRUGS (3)
  1. VIOXX [Suspect]
  2. CLOPIDOGREL 75 MG QD [Suspect]
  3. ASPIRIN [Suspect]

REACTIONS (1)
  - UPPER GASTROINTESTINAL HAEMORRHAGE [None]
